FAERS Safety Report 6571463-0 (Version None)
Quarter: 2010Q1

REPORT INFORMATION
  Report Type: 
  Country: None (occurrence: None)
  Receive Date: 20100205
  Receipt Date: 20100125
  Transmission Date: 20100710
  Serious: Yes (Death)
  Sender: FDA-Public Use
  Company Number: DE-PFIZER INC-2010013587

PATIENT
  Age: 80 Year
  Sex: Male

DRUGS (5)
  1. ARGATRA [Suspect]
     Indication: HEPARIN-INDUCED THROMBOCYTOPENIA
     Dosage: 0.12 UG/KG/MIN
     Route: 042
     Dates: start: 20091211, end: 20091215
  2. ARTERENOL [Concomitant]
     Dosage: 0.2 MG/ML (9 ML/HR)
     Dates: start: 20091205, end: 20091215
  3. SUPRARENIN [Concomitant]
     Dosage: 0.1 MG/ML (10 ML/HR)
     Dates: start: 20091206, end: 20091215
  4. COROTROP [Concomitant]
     Dosage: 0.2 MG/ML (5 ML/HR)
     Dates: start: 20091209, end: 20091215
  5. VASOPRESSIN INJECTION [Concomitant]
     Dosage: 1 MG/ML (2 ML/HR)
     Dates: start: 20091215, end: 20091215

REACTIONS (1)
  - CORONARY ARTERY DISEASE [None]
